FAERS Safety Report 18863646 (Version 2)
Quarter: 2021Q1

REPORT INFORMATION
  Report Type: Report from Study
  Country: US (occurrence: US)
  Receive Date: 20210208
  Receipt Date: 20210215
  Transmission Date: 20210420
  Serious: No
  Sender: FDA-Public Use
  Company Number: NVSC2021US027419

PATIENT
  Age: 62 Year
  Sex: Female

DRUGS (1)
  1. ENTRESTO [Suspect]
     Active Substance: SACUBITRIL\VALSARTAN
     Indication: PRODUCT USED FOR UNKNOWN INDICATION
     Dosage: UNK, BID
     Route: 048

REACTIONS (6)
  - Cough [Unknown]
  - Throat clearing [Unknown]
  - Palpitations [Recovering/Resolving]
  - Fatigue [Unknown]
  - Hypoacusis [Unknown]
  - Inappropriate schedule of product administration [Unknown]
